FAERS Safety Report 6870889-5 (Version None)
Quarter: 2010Q3

REPORT INFORMATION
  Report Type: 
  Country: None (occurrence: None)
  Receive Date: 20100723
  Receipt Date: 20100712
  Transmission Date: 20110219
  Serious: Yes (Other)
  Sender: FDA-Public Use
  Company Number: PHHY2010PT41282

PATIENT
  Sex: Female

DRUGS (9)
  1. RASILEZ [Suspect]
     Indication: HYPERTENSION
     Dosage: UNK
  2. AMLODIPINE BESYLATE AND VALSARTAN [Concomitant]
     Dosage: UNK
  3. EUCREAS [Concomitant]
     Dosage: UNK
  4. DAFLON 500 [Concomitant]
     Dosage: UNK
  5. SIMVASTATIN [Concomitant]
     Dosage: UNK
  6. ACTONEL [Concomitant]
     Dosage: UNK
  7. DIAMICRON LM [Concomitant]
     Dosage: UNK
  8. NSAID'S [Concomitant]
     Dosage: UNK, (SOS)
  9. ANGIOTENSIN II ANTAGONISTS [Concomitant]
     Dosage: UNK

REACTIONS (5)
  - ABDOMINAL DISTENSION [None]
  - ANGIOEDEMA [None]
  - ATRIAL FIBRILLATION [None]
  - EYE OEDEMA [None]
  - OEDEMA PERIPHERAL [None]
